FAERS Safety Report 12191338 (Version 4)
Quarter: 2018Q1

REPORT INFORMATION
  Report Type: Spontaneous
  Country: US (occurrence: US)
  Receive Date: 20160318
  Receipt Date: 20180125
  Transmission Date: 20180508
  Serious: Yes (Other)
  Sender: FDA-Public Use
  Company Number: US-ASTELLAS-2016US010063

PATIENT
  Sex: Female

DRUGS (1)
  1. VESICARE [Suspect]
     Active Substance: SOLIFENACIN SUCCINATE
     Indication: URINARY INCONTINENCE
     Route: 048
     Dates: start: 2013

REACTIONS (6)
  - Memory impairment [Unknown]
  - Insomnia [Unknown]
  - Product use in unapproved indication [Unknown]
  - Brain oedema [Unknown]
  - Drug ineffective [Unknown]
  - Panic attack [Unknown]

NARRATIVE: CASE EVENT DATE: 2014
